FAERS Safety Report 4661738-4 (Version None)
Quarter: 2005Q2

REPORT INFORMATION
  Report Type: 
  Country: None (occurrence: None)
  Receive Date: 20050513
  Receipt Date: 20050504
  Transmission Date: 20051028
  Serious: Yes (Hospitalization)
  Sender: FDA-Public Use
  Company Number: US-ROCHE-403737

PATIENT
  Age: 46 Year
  Sex: Female

DRUGS (13)
  1. PEG-INTERFERON ALFA 2A (RO 25-8310) [Suspect]
     Indication: HEPATITIS C VIRUS
     Route: 058
     Dates: start: 20041109, end: 20050426
  2. RIBAVIRIN [Suspect]
     Indication: HEPATITIS C VIRUS
     Route: 065
     Dates: start: 20041109, end: 20041222
  3. RIBAVIRIN [Suspect]
     Dosage: 200 MG AM/400 MG PM
     Route: 065
     Dates: start: 20041222, end: 20050310
  4. METHADONE HCL [Concomitant]
  5. NEURONTIN [Concomitant]
     Dosage: 1.5 YEARS APPROXIMATE DURATION OF USE
  6. AMBIEN [Concomitant]
     Dosage: AT BEDTIME
  7. FLEXERIL [Concomitant]
     Dosage: ON AN AS NEEDED BASIS
     Route: 048
  8. SENOKOT [Concomitant]
     Dosage: ON AN AS NEEDED BASIS (PRN)
     Route: 048
  9. ATARAX [Concomitant]
     Route: 048
  10. M.V.I. [Concomitant]
     Dosage: 1.5 YEARS DURATION OF USE
  11. KALETRA [Concomitant]
     Route: 048
  12. COMBIVIR [Concomitant]
  13. PROCRIT [Concomitant]

REACTIONS (10)
  - ASTHENIA [None]
  - BLOOD POTASSIUM DECREASED [None]
  - ELECTROCARDIOGRAM QT PROLONGED [None]
  - FATIGUE [None]
  - HAEMOGLOBIN DECREASED [None]
  - HEART RATE IRREGULAR [None]
  - MITRAL VALVE INCOMPETENCE [None]
  - SUPRAVENTRICULAR EXTRASYSTOLES [None]
  - TACHYCARDIA [None]
  - VENTRICULAR EXTRASYSTOLES [None]
